FAERS Safety Report 6599687-7 (Version None)
Quarter: 2010Q1

REPORT INFORMATION
  Report Type: 
  Country: None (occurrence: None)
  Receive Date: 20100224
  Receipt Date: 20100218
  Transmission Date: 20100710
  Serious: Yes (Death)
  Sender: FDA-Public Use
  Company Number: US-ELI_LILLY_AND_COMPANY-US201002005567

PATIENT
  Age: 22 Year
  Sex: Female

DRUGS (1)
  1. DROTRECOGIN ALFA (ACTIVATED) [Suspect]
     Indication: MENINGITIS
     Dosage: 8900 UG, OTHER
     Route: 042

REACTIONS (2)
  - ACCIDENTAL OVERDOSE [None]
  - MEDICATION ERROR [None]
